FAERS Safety Report 17330778 (Version 2)
Quarter: 2020Q1

REPORT INFORMATION
  Report Type: Spontaneous
  Country: US (occurrence: US)
  Receive Date: 20200127
  Receipt Date: 20200203
  Transmission Date: 20200409
  Serious: Yes (Other)
  Sender: FDA-Public Use
  Company Number: US-PFIZER INC-2020032627

PATIENT
  Age: 57 Year
  Sex: Male
  Weight: 102.6 kg

DRUGS (4)
  1. COLACE [Concomitant]
     Active Substance: DOCUSATE SODIUM
     Dosage: 2 DF, 2X/DAY (1 BY MOUTH IN THE MORNING AND 1 BY MOUTH IN THE EVENING)
     Route: 048
  2. ALLEGRA [Concomitant]
     Active Substance: FEXOFENADINE HYDROCHLORIDE
     Indication: HYPERSENSITIVITY
     Dosage: 180 MG, DAILY
     Route: 048
  3. DILANTIN [Suspect]
     Active Substance: PHENYTOIN
     Indication: SEIZURE
     Dosage: 200 MG, DAILY
     Route: 048
     Dates: start: 2012
  4. DILANTIN [Suspect]
     Active Substance: PHENYTOIN
     Dosage: UNK (SAT/SUN/MON/TUES 300MG ADDITIONALLY AT NIGHT, WED/THURS/FRI 200MG ADDITIONALLY AT NIGHT)

REACTIONS (4)
  - Product label confusion [Not Recovered/Not Resolved]
  - Drug ineffective [Not Recovered/Not Resolved]
  - Drug level decreased [Not Recovered/Not Resolved]
  - Epilepsy [Not Recovered/Not Resolved]

NARRATIVE: CASE EVENT DATE: 201904
